FAERS Safety Report 18691486 (Version 15)
Quarter: 2022Q2

REPORT INFORMATION
  Report Type: Report from Study
  Country: US (occurrence: US)
  Receive Date: 20210101
  Receipt Date: 20220419
  Transmission Date: 20220720
  Serious: Yes (Other)
  Sender: FDA-Public Use
  Company Number: US-SHIRE-US202009451

PATIENT
  Age: 78 Year
  Sex: Female

DRUGS (2)
  1. HUMAN IMMUNOGLOBULIN G\HYALURONIDASE RECOMBINANT HUMAN [Suspect]
     Active Substance: HUMAN IMMUNOGLOBULIN G\HYALURONIDASE RECOMBINANT HUMAN
     Indication: Primary immunodeficiency syndrome
     Dosage: 40 GRAM, MONTHLY
     Route: 065
  2. CUVITRU [Suspect]
     Active Substance: HUMAN IMMUNOGLOBULIN G
     Indication: Primary immunodeficiency syndrome
     Dosage: 20 GRAM, Q2WEEKS
     Route: 065

REACTIONS (44)
  - Lung carcinoma cell type unspecified stage IV [Unknown]
  - Hepatic cirrhosis [Unknown]
  - Neoplasm malignant [Unknown]
  - Rectal haemorrhage [Unknown]
  - Infusion site erythema [Unknown]
  - Scab [Unknown]
  - Illness [Unknown]
  - Tooth loss [Unknown]
  - Wound [Unknown]
  - Hypersomnia [Unknown]
  - Alopecia [Unknown]
  - Gastric dilatation [Unknown]
  - Condition aggravated [Unknown]
  - Spinal stenosis [Unknown]
  - Arthritis [Unknown]
  - Multiple allergies [Unknown]
  - Food poisoning [Unknown]
  - Eye disorder [Unknown]
  - Insomnia [Unknown]
  - Sinusitis [Unknown]
  - Nasopharyngitis [Unknown]
  - Herpes zoster [Unknown]
  - Psoriasis [Unknown]
  - Jaw disorder [Unknown]
  - Dizziness [Unknown]
  - Nausea [Unknown]
  - Urticaria [Unknown]
  - Asthma [Unknown]
  - Fatigue [Unknown]
  - Cough [Unknown]
  - Vomiting [Unknown]
  - Discomfort [Unknown]
  - Infusion site pain [Unknown]
  - Dyspnoea [Unknown]
  - Migraine [Unknown]
  - Infusion site pruritus [Unknown]
  - Infusion site mass [Unknown]
  - Wrong technique in device usage process [Unknown]
  - Therapy interrupted [Unknown]
  - Hunger [Unknown]
  - Herpes zoster [Unknown]
  - Fracture [Unknown]
  - Toothache [Unknown]
  - Headache [Unknown]

NARRATIVE: CASE EVENT DATE: 20200303
